FAERS Safety Report 4398293-2 (Version None)
Quarter: 2004Q3

REPORT INFORMATION
  Report Type: 
  Country: None (occurrence: None)
  Receive Date: 20040712
  Receipt Date: 20040628
  Transmission Date: 20050211
  Serious: Yes (Other)
  Sender: FDA-Public Use
  Company Number: GB-JNJFOC-20040607968

PATIENT
  Age: 65 Year
  Sex: Male
  Weight: 100 kg

DRUGS (4)
  1. REMICADE [Suspect]
     Indication: PSORIASIS
     Dosage: SEE IMAGE
     Dates: end: 20040422
  2. REMICADE [Suspect]
     Indication: PSORIASIS
     Dosage: SEE IMAGE
     Dates: start: 19900101
  3. METHOTREXATE [Concomitant]
  4. FOLIC ACID [Concomitant]

REACTIONS (4)
  - CIRCULATORY COLLAPSE [None]
  - HYPOTENSION [None]
  - INFUSION RELATED REACTION [None]
  - LOSS OF CONSCIOUSNESS [None]
